FAERS Safety Report 6374692-4 (Version None)
Quarter: 2009Q3

REPORT INFORMATION
  Report Type: 
  Country: None (occurrence: None)
  Receive Date: 20090924
  Receipt Date: 20090916
  Transmission Date: 20100115
  Serious: Yes (Hospitalization, Other)
  Sender: FDA-Public Use
  Company Number: US-JNJFOC-20090905136

PATIENT
  Age: 70 Year
  Sex: Female

DRUGS (1)
  1. REMICADE [Suspect]
     Indication: RHEUMATOID ARTHRITIS
     Route: 042
     Dates: start: 20030101

REACTIONS (7)
  - ARTHRALGIA [None]
  - ASTHMA [None]
  - CHILLS [None]
  - HERPES ZOSTER [None]
  - MALIGNANT MELANOMA [None]
  - MYALGIA [None]
  - PSORIASIS [None]
